FAERS Safety Report 11255654 (Version 1)
Quarter: 2015Q3

REPORT INFORMATION
  Report Type: Spontaneous
  Country: FR (occurrence: FR)
  Receive Date: 20150709
  Receipt Date: 20150709
  Transmission Date: 20151125
  Serious: Yes (Hospitalization, Other)
  Sender: FDA-Public Use
  Company Number: FR-BRISTOL-MYERS SQUIBB COMPANY-BMS-2015-044398

PATIENT
  Age: 48 Year
  Sex: Female
  Weight: 70 kg

DRUGS (8)
  1. ALDACTONE [Suspect]
     Active Substance: SPIRONOLACTONE
     Indication: HYPERTENSION
     Dosage: 1 UNK, UNK
     Route: 065
     Dates: start: 20150616, end: 20150616
  2. DOSTINEX [Concomitant]
     Active Substance: CABERGOLINE
     Indication: PRODUCT USED FOR UNKNOWN INDICATION
     Dosage: 0.5 MG, UNK
     Route: 065
     Dates: start: 20150410
  3. KETOCONAZOLE. [Concomitant]
     Active Substance: KETOCONAZOLE
     Indication: PITUITARY-DEPENDENT CUSHING^S SYNDROME
     Dosage: 200 MG, BID
     Route: 065
     Dates: start: 201503, end: 20150616
  4. METOPIRONE [Suspect]
     Active Substance: METYRAPONE
     Indication: PITUITARY-DEPENDENT CUSHING^S SYNDROME
     Dosage: 500 MG, TID
     Route: 065
     Dates: start: 20150508, end: 20150616
  5. LYSODREN [Suspect]
     Active Substance: MITOTANE
     Indication: PITUITARY-DEPENDENT CUSHING^S SYNDROME
     Dosage: 1.5 G, TID
     Route: 065
     Dates: start: 20150510, end: 20150616
  6. PARACETAMOL [Suspect]
     Active Substance: ACETAMINOPHEN
     Indication: PRODUCT USED FOR UNKNOWN INDICATION
     Dosage: 16 G,QD
     Route: 065
     Dates: start: 20150616, end: 20150616
  7. LYSODREN [Suspect]
     Active Substance: MITOTANE
     Dosage: 200 DF, QD
     Route: 065
     Dates: start: 20150616, end: 20150616
  8. METOPIRONE [Suspect]
     Active Substance: METYRAPONE
     Dosage: 50 DF, QD
     Route: 065
     Dates: start: 20150616, end: 20150616

REACTIONS (5)
  - Somnolence [Recovered/Resolved]
  - Intentional overdose [Recovered/Resolved]
  - Adrenal insufficiency [Recovered/Resolved]
  - Hypotension [Unknown]
  - Vomiting [Recovered/Resolved]

NARRATIVE: CASE EVENT DATE: 201506
